FAERS Safety Report 4911799-X (Version None)
Quarter: 2006Q1

REPORT INFORMATION
  Report Type: 
  Country: None (occurrence: None)
  Receive Date: 20060213
  Receipt Date: 20060213
  Transmission Date: 20060701
  Serious: Yes (Death, Life-Threatening, Hospitalization, Other)
  Sender: FDA-Public Use
  Company Number: None

PATIENT
  Sex: Female
  Weight: 74.8435 kg

DRUGS (2)
  1. AYGESTIN [Suspect]
     Indication: UTERINE ENLARGEMENT
     Dosage: 5 MG TABLET ORALLY DAILY
     Route: 048
     Dates: start: 20051019, end: 20051122
  2. PRINIVIL [Concomitant]

REACTIONS (10)
  - BREAST CANCER FEMALE [None]
  - DIZZINESS [None]
  - FATIGUE [None]
  - OESTROGEN RECEPTOR ASSAY POSITIVE [None]
  - PERICARDIAL EFFUSION [None]
  - PLEURAL EFFUSION [None]
  - PRODUCTIVE COUGH [None]
  - PROGESTERONE RECEPTOR ASSAY POSITIVE [None]
  - RENAL FAILURE [None]
  - RESPIRATORY DISORDER [None]
